FAERS Safety Report 14176829 (Version 2)
Quarter: 2018Q2

REPORT INFORMATION
  Report Type: Spontaneous
  Country: FR (occurrence: FR)
  Receive Date: 20171110
  Receipt Date: 20180620
  Transmission Date: 20180711
  Serious: Yes (Other)
  Sender: FDA-Public Use
  Company Number: FR-MERCK KGAA-2033782

PATIENT
  Age: 63 Year
  Sex: Female
  Weight: 69 kg

DRUGS (3)
  1. NOVOTHYROX [Suspect]
     Active Substance: LEVOTHYROXINE SODIUM
     Indication: THYROIDECTOMY
     Route: 048
     Dates: start: 201705, end: 20170726
  2. LEVOTHYROX 25 NF [Suspect]
     Active Substance: LEVOTHYROXINE SODIUM
     Route: 048
     Dates: start: 201703, end: 20170726
  3. LEVOTHYROX 100 NF [Suspect]
     Active Substance: LEVOTHYROXINE SODIUM
     Route: 048
     Dates: start: 20170626, end: 20180126

REACTIONS (15)
  - Muscle spasms [Not Recovered/Not Resolved]
  - Fatigue [Recovering/Resolving]
  - Onychoclasis [Not Recovered/Not Resolved]
  - Oedema peripheral [Recovered/Resolved]
  - Asthenia [Not Recovered/Not Resolved]
  - Alopecia [Not Recovered/Not Resolved]
  - Diarrhoea [Recovered/Resolved]
  - Pain in extremity [Not Recovered/Not Resolved]
  - Weight increased [Not Recovered/Not Resolved]
  - Hyperhidrosis [Recovered/Resolved]
  - Vertigo [Recovered/Resolved]
  - Dizziness [Recovering/Resolving]
  - Oedema peripheral [Not Recovered/Not Resolved]
  - Abdominal distension [Recovered/Resolved]
  - Blood thyroid stimulating hormone normal [Recovered/Resolved]

NARRATIVE: CASE EVENT DATE: 201706
